FAERS Safety Report 19868653 (Version 1)
Quarter: 2021Q3

REPORT INFORMATION
  Report Type: Spontaneous
  Country: CO (occurrence: CO)
  Receive Date: 20210921
  Receipt Date: 20210921
  Transmission Date: 20211014
  Serious: Yes (Other)
  Sender: FDA-Public Use
  Company Number: CO-AMGEN-COLSP2021145703

PATIENT
  Age: 51 Year
  Sex: Male

DRUGS (1)
  1. ENBREL [Suspect]
     Active Substance: ETANERCEPT
     Indication: PRODUCT USED FOR UNKNOWN INDICATION
     Dosage: 50 MG, UNSPECIFIED FREQUENCY
     Route: 058

REACTIONS (4)
  - Varicose ulceration [Unknown]
  - Decreased immune responsiveness [Unknown]
  - Infected skin ulcer [Unknown]
  - Illness [Unknown]
